FAERS Safety Report 13456897 (Version 1)
Quarter: 2017Q2

REPORT INFORMATION
  Report Type: Spontaneous
  Country: LV (occurrence: LV)
  Receive Date: 20170419
  Receipt Date: 20170419
  Transmission Date: 20170830
  Serious: Yes (Other)
  Sender: FDA-Public Use
  Company Number: LV-JNJFOC-20170417450

PATIENT
  Age: 77 Year
  Sex: Female
  Weight: 83 kg

DRUGS (4)
  1. XARELTO [Suspect]
     Active Substance: RIVAROXABAN
     Indication: CEREBRAL THROMBOSIS
     Route: 048
     Dates: start: 20150105, end: 20170319
  2. MOXOGAMMA [Concomitant]
     Active Substance: MOXONIDINE
     Route: 048
  3. SPIRIX [Concomitant]
     Active Substance: SPIRONOLACTONE
     Route: 048
  4. CONCOR [Concomitant]
     Active Substance: BISOPROLOL FUMARATE
     Route: 048

REACTIONS (3)
  - Blood creatinine increased [Recovering/Resolving]
  - Blood pressure decreased [Recovering/Resolving]
  - Urinary retention [Recovering/Resolving]

NARRATIVE: CASE EVENT DATE: 20170317
